FAERS Safety Report 5690146-2 (Version None)
Quarter: 2008Q2

REPORT INFORMATION
  Report Type: 
  Country: None (occurrence: None)
  Receive Date: 20080401
  Receipt Date: 20080328
  Transmission Date: 20081010
  Serious: Yes (Hospitalization, Other)
  Sender: FDA-Public Use
  Company Number: PHNU2007DE01943

PATIENT
  Sex: Female

DRUGS (2)
  1. LEPONEX [Suspect]
     Dosage: UNKNOWN
     Route: 048
     Dates: start: 19970101
  2. LEPONEX [Suspect]
     Dosage: 100 MG/DAY
     Route: 048

REACTIONS (5)
  - DIABETES MELLITUS [None]
  - HAEMATOCRIT DECREASED [None]
  - HAEMOGLOBIN DECREASED [None]
  - OBESITY [None]
  - RED BLOOD CELL COUNT DECREASED [None]
